FAERS Safety Report 9352780 (Version 1)
Quarter: 2013Q2

REPORT INFORMATION
  Report Type: Spontaneous
  Country: US (occurrence: None)
  Receive Date: 20130614
  Receipt Date: 20130614
  Transmission Date: 20140414
  Serious: Yes (Other)
  Sender: FDA-Public Use
  Company Number: None

PATIENT
  Age: 66 Year
  Sex: Female
  Weight: 80.74 kg

DRUGS (2)
  1. DOXORUBICIN HCL LIPOSOMAL 20MG VIAL SUNPHARMA [Suspect]
     Dosage: EVERY 21 DAYS
     Route: 042
     Dates: start: 20130522, end: 20130522
  2. DOXORUBICIN HCL LIPOSOMAL 50MG VIAL SUNPHARMA [Suspect]

REACTIONS (3)
  - Eye swelling [None]
  - Ocular hyperaemia [None]
  - Dyspnoea [None]
